FAERS Safety Report 8548429-4 (Version None)
Quarter: 2012Q3

REPORT INFORMATION
  Report Type: 
  Country: None (occurrence: None)
  Receive Date: 20120730
  Receipt Date: 20120720
  Transmission Date: 20120928
  Serious: Yes (Death, Other)
  Sender: FDA-Public Use
  Company Number: FR-009507513-1008FRA00018

PATIENT

DRUGS (17)
  1. VIREAD [Suspect]
     Indication: HIV INFECTION
     Dosage: 300 MG, QD
     Route: 048
     Dates: start: 20100530
  2. BACTRIM [Concomitant]
     Indication: PROPHYLAXIS
     Dosage: UNK
     Route: 048
     Dates: start: 20100520, end: 20100726
  3. RIFAMPIN [Suspect]
     Indication: TUBERCULOSIS
     Dosage: 600 MG, QD
     Route: 048
     Dates: start: 20100522, end: 20100810
  4. LEUCOVORIN CALCIUM [Concomitant]
     Indication: LEUKOPENIA
  5. ISENTRESS [Suspect]
     Indication: HIV INFECTION
     Dosage: 800 MG, QD
     Route: 048
     Dates: start: 20100530, end: 20100831
  6. LEUCOVORIN CALCIUM [Concomitant]
     Indication: ANAEMIA
     Dosage: 15 MG, QD
     Dates: start: 20100607
  7. IVERMECTIN [Concomitant]
     Indication: ACARODERMATITIS
     Dosage: 12 MG, QD
     Route: 048
     Dates: start: 20100705, end: 20100724
  8. ISONIAZID [Suspect]
     Indication: TUBERCULOSIS
     Dosage: 400 MG, QD
     Route: 048
     Dates: start: 20100522, end: 20100810
  9. ACYCLOVIR [Concomitant]
     Indication: ACARODERMATITIS
     Dosage: 1200 MG, QD
     Dates: start: 20100720, end: 20100728
  10. DAPSONE [Suspect]
     Indication: PROPHYLAXIS
     Dosage: 100 MG, QD
     Dates: start: 20110115
  11. PYRAZINAMIDE [Suspect]
     Indication: TUBERCULOSIS
     Dosage: 2 G, QD
     Route: 048
     Dates: start: 20100522, end: 20100726
  12. EPIVIR [Suspect]
     Indication: HIV INFECTION
     Dosage: 300 MG, QD
     Route: 048
     Dates: start: 20100630
  13. CIPROFLAXACIN [Concomitant]
     Indication: PROSTATISM
     Dosage: 1 G, QD
     Dates: start: 20100715, end: 20100729
  14. KALETRA [Suspect]
     Indication: HIV INFECTION
     Dosage: 20
     Route: 048
     Dates: start: 20101122
  15. AZITHROMYCIN [Concomitant]
     Indication: PROPHYLAXIS
     Dosage: 1.5 G, QD
     Dates: start: 20100611, end: 20100726
  16. PYRIDOXINE HCL [Concomitant]
     Indication: PROPHYLAXIS
     Dosage: 25 MG, QD
     Dates: start: 20100614, end: 20100810
  17. OMEPRAZOLE [Concomitant]
     Indication: PROPHYLAXIS
     Dosage: 40 MG, QD
     Route: 048
     Dates: start: 20100520, end: 20100629

REACTIONS (6)
  - DRUG ERUPTION [None]
  - ASPARTATE AMINOTRANSFERASE INCREASED [None]
  - ANAEMIA [None]
  - NEUTROPENIA [None]
  - DEATH [None]
  - LEUKOPENIA [None]
